FAERS Safety Report 7103200-5 (Version None)
Quarter: 2010Q4

REPORT INFORMATION
  Report Type: 
  Country: None (occurrence: None)
  Receive Date: 20101115
  Receipt Date: 20101102
  Transmission Date: 20110411
  Serious: Yes (Death)
  Sender: FDA-Public Use
  Company Number: JP-MERCK-1011USA00756

PATIENT
  Age: 58 Year
  Sex: Female

DRUGS (5)
  1. HYZAAR [Suspect]
     Indication: HYPERTENSION
     Route: 048
     Dates: start: 20101031
  2. TALION [Concomitant]
     Indication: RHINITIS ALLERGIC
     Route: 048
     Dates: start: 20101027
  3. ITOROL [Concomitant]
     Dosage: DAILY DOSAGE UNKNOWN
     Route: 048
     Dates: start: 20100801
  4. BUFFERIN [Concomitant]
     Dosage: DAILY DOSAGE UNKNOWN
     Route: 048
     Dates: start: 20100801
  5. NIFEDIPINE [Concomitant]
     Dosage: DAILY DOSAGE UNKNOWN
     Route: 048
     Dates: start: 20100801

REACTIONS (1)
  - DEATH [None]
